FAERS Safety Report 7018635-9 (Version None)
Quarter: 2010Q3

REPORT INFORMATION
  Report Type: 
  Country: None (occurrence: None)
  Receive Date: 20100924
  Receipt Date: 20100910
  Transmission Date: 20110219
  Serious: Yes (Hospitalization)
  Sender: FDA-Public Use
  Company Number: DSJ-2010-16309

PATIENT
  Age: 54 Year
  Sex: Male

DRUGS (4)
  1. AMLODIPINE BESYLATE AND OLMESARTAN MEDOXOMIL [Suspect]
     Indication: HYPERTENSION
     Dosage: 20/5 MG (1 IN 1 D),PER ORAL
     Route: 048
     Dates: start: 20100101, end: 20100201
  2. AMILORIDE HCL AND HYDROCHLOROTHIAZIDE [Suspect]
     Indication: OEDEMA PERIPHERAL
     Dosage: PER ORAL
     Route: 048
     Dates: start: 20100201, end: 20100201
  3. SIMVASTATIN [Concomitant]
  4. UNKNOWN [Concomitant]

REACTIONS (4)
  - HYPOTENSION [None]
  - OEDEMA PERIPHERAL [None]
  - SELF-MEDICATION [None]
  - SYNCOPE [None]
